FAERS Safety Report 5877533-4 (Version None)
Quarter: 2008Q3

REPORT INFORMATION
  Report Type: 
  Country: None (occurrence: None)
  Receive Date: 20080911
  Receipt Date: 20080722
  Transmission Date: 20090109
  Serious: Yes (Other)
  Sender: FDA-Public Use
  Company Number: US-KINGPHARMUSA00001-K200800870

PATIENT

DRUGS (1)
  1. PENICILLIN G PROCAINE [Suspect]
     Dates: start: 20030101

REACTIONS (1)
  - CONVULSION [None]
